FAERS Safety Report 8443287 (Version 3)
Quarter: 2013Q1

REPORT INFORMATION
  Report Type: Spontaneous
  Country: US (occurrence: US)
  Receive Date: 20120306
  Receipt Date: 20130315
  Transmission Date: 20140127
  Serious: Yes (Other)
  Sender: FDA-Public Use
  Company Number: US-PFIZER INC-2012055228

PATIENT
  Age: 83 Year
  Sex: Female
  Weight: 77.1 kg

DRUGS (19)
  1. LYRICA [Suspect]
     Indication: NEUROPATHY PERIPHERAL
     Dosage: 50 MG, 2X/DAY
     Dates: start: 1992
  2. LYRICA [Suspect]
     Indication: NEUROPATHY PERIPHERAL
     Dosage: 300 MG, DAILY
  3. LYRICA [Suspect]
     Dosage: 75 MG, 4X/DAY
     Dates: end: 201302
  4. GABAPENTIN [Suspect]
     Indication: PAIN
     Dosage: UNK
  5. IBUPROFEN [Suspect]
     Dosage: UNK
  6. ASPIRIN [Suspect]
     Dosage: UNK
  7. TYLENOL [Suspect]
     Indication: PAIN
     Dosage: UNK
  8. ISOSORBIDE [Concomitant]
     Indication: CARDIAC DISORDER
     Dosage: UNK, 2X/DAY
  9. ISOSORBIDE [Concomitant]
     Indication: CARDIAC DISORDER
  10. TRAMADOL [Concomitant]
     Dosage: UNK
  11. DIOVAN [Concomitant]
     Indication: HYPERTENSION
     Dosage: UNK
  12. ALBUTEROL [Concomitant]
     Dosage: UNK
  13. VITAMIN B COMPLEX [Concomitant]
     Dosage: UNK
  14. OS-CAL D [Concomitant]
     Dosage: UNK
  15. OMEPRAZOLE [Concomitant]
     Dosage: UNK
  16. PLAVIX [Concomitant]
     Dosage: UNK
  17. CRESTOR [Concomitant]
     Dosage: UNK
  18. CALCITROL [Concomitant]
     Dosage: UNK
  19. BYSTOLIC [Concomitant]
     Indication: CARDIAC DISORDER
     Dosage: 2.5 MG, 3X/DAY

REACTIONS (17)
  - Joint instability [Unknown]
  - Blindness unilateral [Unknown]
  - Optic ischaemic neuropathy [Unknown]
  - Vasculitis [Unknown]
  - Glaucoma [Unknown]
  - Visual field defect [Unknown]
  - Retinal disorder [Unknown]
  - Eye disorder [Unknown]
  - Visual impairment [Unknown]
  - Balance disorder [Unknown]
  - Haemorrhage [Unknown]
  - Drug effect incomplete [Unknown]
  - Muscle twitching [Unknown]
  - Breakthrough pain [Unknown]
  - Pain in extremity [Not Recovered/Not Resolved]
  - Discomfort [Unknown]
  - Myocardial infarction [Unknown]
